FAERS Safety Report 10471623 (Version 3)
Quarter: 2014Q4

REPORT INFORMATION
  Report Type: Report from Study
  Country: BR (occurrence: BR)
  Receive Date: 20140923
  Receipt Date: 20141024
  Transmission Date: 20150528
  Serious: Yes (Other)
  Sender: FDA-Public Use
  Company Number: PHHY2014BR124020

PATIENT
  Sex: Male
  Weight: 104 kg

DRUGS (7)
  1. FLUX//INDAPAMIDE [Suspect]
     Active Substance: INDAPAMIDE
     Indication: HYPERTENSION
     Dosage: 1 DF, QD (AFTER BREAKFAST)
     Route: 048
     Dates: end: 20140919
  2. DIOVAN HCT [Suspect]
     Active Substance: HYDROCHLOROTHIAZIDE\VALSARTAN
     Indication: HYPERTENSION
     Dosage: 1 DF (320/25 MG), QD (IN THE MORNING)
     Route: 048
  3. NAPRIX [Suspect]
     Active Substance: RAMIPRIL
     Indication: HYPERTENSION
     Dosage: 1 DF, QD (IN THE MORNING)
     Route: 048
     Dates: end: 20140919
  4. GALVUS MET [Concomitant]
     Active Substance: METFORMIN HYDROCHLORIDE\VILDAGLIPTIN
     Indication: DIABETES MELLITUS
     Dosage: UNK UKN, UNK
     Route: 065
  5. DIOVAN HCT [Suspect]
     Active Substance: HYDROCHLOROTHIAZIDE\VALSARTAN
     Dosage: 1 DF (320/12.5 MG),DAILY
     Route: 048
  6. AZOPT [Concomitant]
     Active Substance: BRINZOLAMIDE
     Indication: GLAUCOMA
     Dosage: UNK UKN, UNK
     Route: 065
  7. XALATAN [Concomitant]
     Active Substance: LATANOPROST
     Indication: GLAUCOMA
     Dosage: UNK UKN, UNK
     Route: 065

REACTIONS (9)
  - Blood glucose increased [Recovering/Resolving]
  - Intraocular pressure increased [Recovering/Resolving]
  - Fatigue [Recovering/Resolving]
  - Somnolence [Recovering/Resolving]
  - Blood triglycerides abnormal [Recovering/Resolving]
  - Blood pressure increased [Recovering/Resolving]
  - Drug ineffective [Recovering/Resolving]
  - Asthenia [Recovering/Resolving]
  - Diabetes mellitus [Recovering/Resolving]
